FAERS Safety Report 4433725-2 (Version None)
Quarter: 2004Q3

REPORT INFORMATION
  Report Type: 
  Country: None (occurrence: None)
  Receive Date: 20040826
  Receipt Date: 20010202
  Transmission Date: 20050211
  Serious: Yes (Hospitalization)
  Sender: FDA-Public Use
  Company Number: 10708501

PATIENT
  Age: 72 Year
  Sex: Female
  Weight: 45 kg

DRUGS (9)
  1. MEVALOTIN [Suspect]
     Indication: HYPERLIPIDAEMIA
     Route: 048
     Dates: start: 19950721
  2. INHIBACE [Suspect]
     Indication: HYPERTENSION
     Dates: start: 19930617
  3. ADALAT [Suspect]
     Indication: HYPERTENSION
     Dosage: TOOK FROM 17JUN93-21JUN93; THEN FROM 22JUN93-09AUG93; THEN FROM 10AUG93-CONTINUES.
     Dates: start: 19930617
  4. PANALDINE [Suspect]
     Indication: THROMBOSIS PROPHYLAXIS
     Dates: start: 19980825
  5. DIGOXIN [Suspect]
     Indication: ATRIAL FIBRILLATION
     Dosage: TOOK FROM 25AUG98-15DEC98; THEN FROM 16DEC98-CONTINUES.
     Dates: start: 19980825
  6. POLARAMINE [Suspect]
     Indication: PRURITUS
     Dates: start: 19990310
  7. SELTOUCH [Suspect]
     Indication: MUSCULOSKELETAL STIFFNESS
     Dates: start: 19991109
  8. EURAX-HYDROCORTISONE [Suspect]
     Indication: PRURITUS
     Dates: start: 19990406, end: 20001111
  9. TENORMIN [Suspect]
     Indication: HYPERTENSION
     Dates: start: 20000515

REACTIONS (2)
  - CEREBELLAR INFARCTION [None]
  - INSOMNIA [None]
